FAERS Safety Report 8185454-X (Version None)
Quarter: 2012Q1

REPORT INFORMATION
  Report Type: 
  Country: None (occurrence: None)
  Receive Date: 20120305
  Receipt Date: 20120227
  Transmission Date: 20120608
  Serious: Yes (Congenital Anomaly, Other)
  Sender: FDA-Public Use
  Company Number: US-TEVA-325025USA

PATIENT
  Sex: Female

DRUGS (3)
  1. CARBAMAZEPINE [Suspect]
     Dosage: 600MG
     Route: 064
  2. VALPROIC ACID [Suspect]
     Dosage: 3500MG AT 6 WEEKS
     Route: 065
  3. VALPROIC ACID [Suspect]
     Dosage: 3000MG AT LAST MENSTRUAL PERIOD, 3500MG AT 6WKS
     Route: 064

REACTIONS (1)
  - MENINGOMYELOCELE [None]
